FAERS Safety Report 16225887 (Version 1)
Quarter: 2019Q2

REPORT INFORMATION
  Report Type: Spontaneous
  Country: FR (occurrence: FR)
  Receive Date: 20190423
  Receipt Date: 20190423
  Transmission Date: 20190711
  Serious: Yes (Death)
  Sender: FDA-Public Use
  Company Number: FR-PROVELL PHARMACEUTICALS-2066120

PATIENT
  Age: 65 Year
  Sex: Female
  Weight: 92 kg

DRUGS (9)
  1. EUTHYROX [Suspect]
     Active Substance: LEVOTHYROXINE SODIUM
     Indication: HYPOTHYROIDISM
     Route: 048
     Dates: end: 20190303
  2. VORICONAZOLE. [Suspect]
     Active Substance: VORICONAZOLE
     Route: 042
     Dates: start: 20190226, end: 20190306
  3. LERCANIDIPINE ARROW GENERIQUES [Suspect]
     Active Substance: LERCANIDIPINE HYDROCHLORIDE
     Route: 048
     Dates: end: 20190226
  4. CYTARABINE ACCORD [Suspect]
     Active Substance: CYTARABINE
     Route: 042
     Dates: start: 20190225, end: 20190301
  5. CHIBRO CADRON(NEODECADRON) [Suspect]
     Active Substance: DEXAMETHASONE SODIUM PHOSPHATE\NEOMYCIN SULFATE
     Route: 047
     Dates: start: 20190225, end: 20190227
  6. EMEND [Suspect]
     Active Substance: APREPITANT
     Route: 048
     Dates: start: 20190225, end: 20190227
  7. EVOLTRA [Suspect]
     Active Substance: CLOFARABINE
     Route: 042
     Dates: start: 20190225, end: 20190301
  8. ONDANSETRON ACCORD [Suspect]
     Active Substance: ONDANSETRON
     Route: 042
     Dates: start: 20190226, end: 20190227
  9. STRESAM [Suspect]
     Active Substance: ETIFOXINE
     Route: 048
     Dates: end: 20190227

REACTIONS (2)
  - Septic shock [Fatal]
  - Bone marrow failure [Fatal]

NARRATIVE: CASE EVENT DATE: 20190227
